FAERS Safety Report 9994906 (Version 2)
Quarter: 2014Q2

REPORT INFORMATION
  Report Type: Spontaneous
  Country: CH (occurrence: None)
  Receive Date: 20140306
  Receipt Date: 20140425
  Transmission Date: 20141212
  Serious: Yes (Life-Threatening, Other)
  Sender: FDA-Public Use
  Company Number: 20140089

PATIENT
  Age: 88 Year
  Sex: Male
  Weight: 72 kg

DRUGS (7)
  1. FERINJECT [Suspect]
     Indication: ANAEMIA
     Dosage: 500 MG IN 100 ML
     Route: 041
     Dates: start: 20140207, end: 20140207
  2. ALDACTONE (SPIRONOLACTONE) [Concomitant]
  3. ARTESAL (LOPERAMIDE/LOPERAMIDE OXIDE) [Concomitant]
  4. DIFFU-K (POTASSIUM CHLORIDE) [Concomitant]
  5. EUPANTOL (PANTOPRAZOLE SODIUM) [Concomitant]
  6. QUESTRAN (CLOESTYRAMINE) [Concomitant]
  7. SERESTA (OXAZEPAM) [Concomitant]

REACTIONS (3)
  - Dyspnoea [None]
  - Blood pressure systolic decreased [None]
  - Unresponsive to stimuli [None]
